FAERS Safety Report 7176796-5 (Version None)
Quarter: 2010Q4

REPORT INFORMATION
  Report Type: 
  Country: None (occurrence: None)
  Receive Date: 20101216
  Receipt Date: 20101216
  Transmission Date: 20110411
  Serious: No
  Sender: FDA-Public Use
  Company Number: None

PATIENT
  Age: 59 Year
  Sex: Female
  Weight: 56.6996 kg

DRUGS (1)
  1. BOTOX [Suspect]

REACTIONS (6)
  - DECREASED ACTIVITY [None]
  - DIARRHOEA [None]
  - HEADACHE [None]
  - MALAISE [None]
  - PYREXIA [None]
  - VISUAL IMPAIRMENT [None]
